FAERS Safety Report 5848605-5 (Version None)
Quarter: 2008Q3

REPORT INFORMATION
  Report Type: 
  Country: None (occurrence: None)
  Receive Date: 20080818
  Receipt Date: 20080707
  Transmission Date: 20090109
  Serious: Yes (Death)
  Sender: FDA-Public Use
  Company Number: CA-GENENTECH-264745

PATIENT
  Sex: Female

DRUGS (26)
  1. BLINDED ALTEPLASE [Suspect]
     Indication: PROPHYLAXIS
     Dosage: UNK
     Route: 050
     Dates: start: 20050720
  2. HEPARIN [Suspect]
     Indication: PROPHYLAXIS
     Dosage: UNK
     Route: 050
     Dates: start: 20050720
  3. ASPIRIN [Concomitant]
     Indication: DRUG USE FOR UNKNOWN INDICATION
     Dosage: 81 MG, QD
     Route: 048
     Dates: start: 20050312
  4. REPLAVITE (CANADA) [Concomitant]
     Indication: DRUG USE FOR UNKNOWN INDICATION
     Dosage: 1 TABLET, QD
     Route: 048
     Dates: start: 20050219
  5. IRON-DEXTRIN COMPLEX [Concomitant]
     Indication: DRUG USE FOR UNKNOWN INDICATION
     Dosage: 100 MG, UNK
     Route: 048
     Dates: start: 20050701
  6. MORPHINE [Concomitant]
     Indication: DRUG USE FOR UNKNOWN INDICATION
     Dosage: 5 MG, UNK
     Route: 058
     Dates: start: 20050511
  7. OMEPRAZOLE [Concomitant]
     Indication: DRUG USE FOR UNKNOWN INDICATION
     Dosage: 20 MG, QD
     Route: 048
  8. DARBEPOETIN ALFA [Concomitant]
     Indication: DRUG USE FOR UNKNOWN INDICATION
     Dosage: 150 A?G, 1/WEEK
     Route: 042
     Dates: start: 20050720
  9. DIPHENHYDRAMINE HCL [Concomitant]
     Indication: DRUG USE FOR UNKNOWN INDICATION
     Dosage: 25-50 MG, PRN
     Route: 048
     Dates: start: 20050514
  10. QUININE SULFATE [Concomitant]
     Indication: DRUG USE FOR UNKNOWN INDICATION
     Dosage: 300 MG, 3/WEEK
     Route: 048
     Dates: start: 20050701
  11. DIMENHYDRINATE [Concomitant]
     Indication: DRUG USE FOR UNKNOWN INDICATION
     Dosage: 12.5-25 MG
     Route: 048
     Dates: start: 20050714
  12. LORAZEPAM [Concomitant]
     Indication: DRUG USE FOR UNKNOWN INDICATION
     Dosage: 1 MG, PRN
     Route: 060
  13. PERCOCET [Concomitant]
     Indication: DRUG USE FOR UNKNOWN INDICATION
     Dosage: 1-2 TABLET, PRN
     Route: 048
  14. SENOKOT [Concomitant]
     Indication: DRUG USE FOR UNKNOWN INDICATION
     Dosage: .6 MG, PRN
     Route: 048
     Dates: start: 20050423
  15. CEFAZOLIN [Concomitant]
     Indication: DRUG USE FOR UNKNOWN INDICATION
     Dosage: 1 G, QD
     Route: 042
     Dates: start: 20050923
  16. REGULAR INSULIN [Concomitant]
     Indication: DRUG USE FOR UNKNOWN INDICATION
     Dosage: 100 IU/ML, UNK
     Route: 058
     Dates: start: 20050515
  17. NPH ILETIN II [Concomitant]
     Indication: DRUG USE FOR UNKNOWN INDICATION
     Dosage: 100 IU/ML, UNK
     Route: 058
     Dates: start: 20050515
  18. HYDROXYZINE [Concomitant]
     Indication: DRUG USE FOR UNKNOWN INDICATION
     Dosage: 10 MG, BID
     Route: 048
     Dates: start: 20050822
  19. EMLA [Concomitant]
     Indication: DRUG USE FOR UNKNOWN INDICATION
     Dosage: 2.5 %, UNK
     Route: 061
     Dates: start: 20050827
  20. HYDROMORPHONE HCL [Concomitant]
     Indication: DRUG USE FOR UNKNOWN INDICATION
     Dosage: 2-4 MG, PRN
     Route: 048
     Dates: start: 20050816
  21. NYSTATIN [Concomitant]
     Indication: DRUG USE FOR UNKNOWN INDICATION
     Dosage: 100000 U, QID
     Route: 048
     Dates: start: 20050506
  22. VITAMIN D3 [Concomitant]
     Indication: DRUG USE FOR UNKNOWN INDICATION
     Dosage: 0.25 A?G, 3/WEEK
     Route: 048
     Dates: start: 20050511
  23. PREDNISONE [Concomitant]
     Indication: DRUG USE FOR UNKNOWN INDICATION
     Dosage: 10 MG, Q2D
     Route: 048
  24. PREDNISONE [Concomitant]
     Dosage: 5 MG, Q2D
     Route: 048
  25. LACTULOSE [Concomitant]
     Indication: DRUG USE FOR UNKNOWN INDICATION
     Dosage: 30 ML, PRN
     Route: 048
  26. HEPARIN [Concomitant]
     Indication: PROPHYLAXIS
     Dosage: 5000 IU/ML, UNK
     Route: 050
     Dates: start: 20050722

REACTIONS (1)
  - DEATH [None]
